FAERS Safety Report 24654812 (Version 1)
Quarter: 2024Q4

REPORT INFORMATION
  Report Type: Spontaneous
  Country: GB (occurrence: GB)
  Receive Date: 20241122
  Receipt Date: 20241122
  Transmission Date: 20250115
  Serious: Yes (Hospitalization, Other)
  Sender: ELI LILLY AND COMPANY
  Company Number: None

PATIENT
  Age: 26 Year
  Sex: Female
  Weight: 116 kg

DRUGS (1)
  1. MOUNJARO [Suspect]
     Active Substance: TIRZEPATIDE
     Indication: Weight control
     Dosage: 2.5MG ONCE WEEKLY
     Route: 065
     Dates: start: 20241026

REACTIONS (10)
  - Burning sensation [Recovering/Resolving]
  - Urticaria [Recovering/Resolving]
  - Feeling hot [Unknown]
  - Sleep disorder due to a general medical condition [Unknown]
  - Feeding disorder [Unknown]
  - Fluid intake reduced [Unknown]
  - Pruritus [Recovering/Resolving]
  - Abdominal pain upper [Recovering/Resolving]
  - Diarrhoea [Recovering/Resolving]
  - Vomiting [Unknown]

NARRATIVE: CASE EVENT DATE: 20241027
